FAERS Safety Report 21071353 (Version 1)
Quarter: 2022Q3

REPORT INFORMATION
  Report Type: Spontaneous
  Country: AU (occurrence: AU)
  Receive Date: 20220712
  Receipt Date: 20220712
  Transmission Date: 20221027
  Serious: Yes (Other)
  Sender: FDA-Public Use
  Company Number: AU-BAXTER-2022BAX014124

PATIENT
  Sex: Female

DRUGS (17)
  1. DOXORUBICIN [Suspect]
     Active Substance: DOXORUBICIN
     Indication: Marginal zone lymphoma
     Dosage: R-CHOP REGIMEN
     Route: 065
     Dates: start: 2006
  2. CYCLOPHOSPHAMIDE [Suspect]
     Active Substance: CYCLOPHOSPHAMIDE
     Indication: Marginal zone lymphoma
     Dosage: R-CHOP REGIMEN
     Route: 065
     Dates: start: 2006
  3. CYCLOPHOSPHAMIDE [Suspect]
     Active Substance: CYCLOPHOSPHAMIDE
     Indication: Disease recurrence
     Dosage: RCEP REGIMEN
     Route: 065
     Dates: start: 2013
  4. CYCLOPHOSPHAMIDE [Suspect]
     Active Substance: CYCLOPHOSPHAMIDE
     Indication: B-cell lymphoma
  5. RITUXIMAB [Suspect]
     Active Substance: RITUXIMAB
     Indication: Marginal zone lymphoma
     Dosage: R-CHOP REGIMEN
     Route: 065
     Dates: start: 2006
  6. RITUXIMAB [Suspect]
     Active Substance: RITUXIMAB
     Indication: Disease recurrence
     Dosage: RCEP REGIMEN AND MAINTENANCE RITUXIMAB
     Route: 065
     Dates: start: 2013
  7. RITUXIMAB [Suspect]
     Active Substance: RITUXIMAB
     Indication: B-cell lymphoma
     Dosage: BR REGIMEN
     Route: 065
     Dates: start: 2017
  8. RITUXIMAB [Suspect]
     Active Substance: RITUXIMAB
     Indication: Metastases to bone
  9. RITUXIMAB [Suspect]
     Active Substance: RITUXIMAB
     Indication: Ill-defined disorder
  10. VINCRISTINE [Suspect]
     Active Substance: VINCRISTINE
     Indication: Marginal zone lymphoma
     Dosage: R-CHOP REGIMEN
     Route: 065
     Dates: start: 2006
  11. PREDNISONE [Suspect]
     Active Substance: PREDNISONE
     Indication: Marginal zone lymphoma
     Dosage: R-CHOP REGIMEN
     Route: 065
     Dates: start: 2006
  12. PREDNISONE [Suspect]
     Active Substance: PREDNISONE
     Indication: B-cell lymphoma
     Dosage: RCEP REGIMEN
     Route: 065
     Dates: start: 2013
  13. PREDNISONE [Suspect]
     Active Substance: PREDNISONE
     Indication: Disease recurrence
  14. BENDAMUSTINE [Suspect]
     Active Substance: BENDAMUSTINE
     Indication: Metastases to bone
     Dosage: BR REGIMEN
     Route: 065
     Dates: start: 2017
  15. BENDAMUSTINE [Suspect]
     Active Substance: BENDAMUSTINE
     Indication: Ill-defined disorder
  16. ETOPOSIDE [Suspect]
     Active Substance: ETOPOSIDE
     Indication: Disease recurrence
     Dosage: RCEP REGIMEN
     Route: 065
     Dates: start: 2013
  17. ETOPOSIDE [Suspect]
     Active Substance: ETOPOSIDE
     Indication: B-cell lymphoma

REACTIONS (9)
  - Disease recurrence [Unknown]
  - B-cell lymphoma [Unknown]
  - Disease recurrence [Unknown]
  - Disease recurrence [Unknown]
  - Ill-defined disorder [Unknown]
  - Metastases to bone [Unknown]
  - Lymphadenopathy [Unknown]
  - Weight decreased [Unknown]
  - Anaemia [Unknown]

NARRATIVE: CASE EVENT DATE: 20130101
